FAERS Safety Report 25269378 (Version 1)
Quarter: 2025Q2

REPORT INFORMATION
  Report Type: Spontaneous
  Country: US (occurrence: US)
  Receive Date: 20250505
  Receipt Date: 20250505
  Transmission Date: 20250716
  Serious: Yes (Hospitalization)
  Sender: SANOFI AVENTIS
  Company Number: US-SA-2025SA126934

PATIENT
  Age: 55 Year
  Sex: Female

DRUGS (2)
  1. XENPOZYME [Suspect]
     Active Substance: OLIPUDASE ALFA-RPCP
     Indication: Niemann-Pick disease
     Dosage: 200 MG, QOW
     Route: 042
     Dates: start: 202212
  2. ADEMPAS [Concomitant]
     Active Substance: RIOCIGUAT

REACTIONS (2)
  - Catheterisation cardiac [Unknown]
  - Weight decreased [Unknown]

NARRATIVE: CASE EVENT DATE: 20250328
